FAERS Safety Report 18616850 (Version 12)
Quarter: 2021Q4

REPORT INFORMATION
  Report Type: Spontaneous
  Country: US (occurrence: US)
  Receive Date: 20201215
  Receipt Date: 20211013
  Transmission Date: 20220303
  Serious: Yes (Death, Other)
  Sender: FDA-Public Use
  Company Number: US-BIOGEN-2020BI00956011

PATIENT
  Age: 58 Year
  Sex: Female
  Weight: 86.26 kg

DRUGS (41)
  1. TYSABRI [Suspect]
     Active Substance: NATALIZUMAB
     Indication: Multiple sclerosis
     Route: 065
     Dates: start: 20071217
  2. TYSABRI [Suspect]
     Active Substance: NATALIZUMAB
     Route: 042
     Dates: start: 20071217, end: 20201104
  3. TYSABRI [Suspect]
     Active Substance: NATALIZUMAB
     Dosage: 300 MILLIGRAM, 1 IN 4 WEEKS
     Route: 042
     Dates: end: 20201202
  4. TYSABRI [Suspect]
     Active Substance: NATALIZUMAB
     Dosage: 300 MILLIGRAM, MONTHLY
     Route: 042
     Dates: start: 20201202
  5. AMPYRA [Suspect]
     Active Substance: DALFAMPRIDINE
     Indication: Gait disturbance
     Dosage: 10 MILLIGRAM, BID
     Route: 048
     Dates: start: 20200529
  6. MODAFINIL [Suspect]
     Active Substance: MODAFINIL
     Indication: Fatigue
     Dosage: TWO TABLET ONCE A MONTH
     Route: 048
     Dates: start: 20200623
  7. MODAFINIL [Suspect]
     Active Substance: MODAFINIL
     Route: 048
     Dates: start: 20190219
  8. VITAMIN D3 [Concomitant]
     Active Substance: CHOLECALCIFEROL
     Indication: Product used for unknown indication
     Dosage: 2 CAPSULE BY MOUTH ONCE A DAY
     Route: 048
  9. IBUPROFEN [Concomitant]
     Active Substance: IBUPROFEN
     Indication: Product used for unknown indication
     Dosage: THREE TIMES A DAY AS NEEDED
     Route: 048
  10. DULOXETINE [Concomitant]
     Active Substance: DULOXETINE
     Indication: Depression
     Route: 048
  11. DULOXETINE [Concomitant]
     Active Substance: DULOXETINE
     Route: 048
  12. TOPIRAMATE [Concomitant]
     Active Substance: TOPIRAMATE
     Indication: Product used for unknown indication
     Dosage: 1 TABLET BY MOUTH EVERY NIGHT AT BEDTIME
     Route: 048
     Dates: start: 20191215
  13. VITAMIN C [Concomitant]
     Active Substance: ASCORBIC ACID
     Indication: Product used for unknown indication
     Route: 048
  14. VITAMIN B COMPLEX [Concomitant]
     Active Substance: CYANOCOBALAMIN\DEXPANTHENOL\NIACINAMIDE\PYRIDOXINE HYDROCHLORIDE\RIBOFLAVIN 5^-PHOSPHATE SODIUM\THIA
     Indication: Product used for unknown indication
     Route: 048
  15. FISH OIL [Concomitant]
     Active Substance: FISH OIL
     Indication: Product used for unknown indication
     Dosage: 120 - 180 MILLIGRAMS
     Route: 048
  16. HORIZANT [Concomitant]
     Active Substance: GABAPENTIN ENACARBIL
     Indication: Product used for unknown indication
     Route: 048
     Dates: start: 20200518
  17. HORIZANT [Concomitant]
     Active Substance: GABAPENTIN ENACARBIL
     Route: 048
     Dates: start: 20190617
  18. ZOLPIDEM [Concomitant]
     Active Substance: ZOLPIDEM TARTRATE
     Indication: Product used for unknown indication
     Dosage: 1 TABLET BY MOUTH EVERY NIGHT
     Route: 048
     Dates: start: 20200811
  19. BUPROPION HYDROCHLORIDE [Concomitant]
     Active Substance: BUPROPION HYDROCHLORIDE
     Indication: Product used for unknown indication
     Route: 048
     Dates: start: 20200827
  20. BUPROPION HYDROCHLORIDE [Concomitant]
     Active Substance: BUPROPION HYDROCHLORIDE
     Route: 048
     Dates: start: 20190627
  21. ALPRAZOLAM [Concomitant]
     Active Substance: ALPRAZOLAM
     Indication: Product used for unknown indication
     Route: 048
     Dates: start: 20200827
  22. ALPRAZOLAM [Concomitant]
     Active Substance: ALPRAZOLAM
     Dosage: BEDTIME
     Route: 048
     Dates: start: 20190222
  23. CARBAMAZEPINE [Concomitant]
     Active Substance: CARBAMAZEPINE
     Indication: Trigeminal neuralgia
     Route: 048
  24. TOPAMAX [Concomitant]
     Active Substance: TOPIRAMATE
     Indication: Trigeminal neuralgia
     Route: 065
     Dates: start: 20190617
  25. AMANTADINE HYDROCHLORIDE [Concomitant]
     Active Substance: AMANTADINE HYDROCHLORIDE
     Indication: Product used for unknown indication
     Route: 048
     Dates: start: 20180115
  26. AMBIEN [Concomitant]
     Active Substance: ZOLPIDEM TARTRATE
     Indication: Product used for unknown indication
     Route: 048
     Dates: start: 20181212
  27. NUEDEXTA [Concomitant]
     Active Substance: DEXTROMETHORPHAN HYDROBROMIDE\QUINIDINE SULFATE
     Indication: Affect lability
     Dosage: UNK
     Route: 065
  28. VITAMINS [Concomitant]
     Active Substance: VITAMINS
     Indication: Product used for unknown indication
     Route: 065
  29. ONDANSETRON [Concomitant]
     Active Substance: ONDANSETRON
     Indication: Product used for unknown indication
     Route: 048
  30. OXYCODONE [Concomitant]
     Active Substance: OXYCODONE
     Indication: Product used for unknown indication
     Route: 048
  31. ATIVAN [Concomitant]
     Active Substance: LORAZEPAM
     Indication: Product used for unknown indication
     Route: 048
  32. OLANZAPINE [Concomitant]
     Active Substance: OLANZAPINE
     Indication: Product used for unknown indication
     Route: 048
  33. TEGRETOL [Concomitant]
     Active Substance: CARBAMAZEPINE
     Indication: Product used for unknown indication
     Route: 048
  34. LIDOCAINE\PRILOCAINE [Concomitant]
     Active Substance: LIDOCAINE\PRILOCAINE
     Indication: Product used for unknown indication
     Dosage: 2.5 PERCENT
     Route: 061
  35. PYRIDIUM [Concomitant]
     Active Substance: PHENAZOPYRIDINE
     Indication: Product used for unknown indication
     Route: 048
  36. WELLBUTRIN [Concomitant]
     Active Substance: BUPROPION HYDROCHLORIDE
     Indication: Product used for unknown indication
     Route: 048
  37. PFIZER-BIONTECH COVID-19 VACCINE [Concomitant]
     Active Substance: TOZINAMERAN
     Indication: COVID-19 prophylaxis
     Route: 065
     Dates: start: 20210225, end: 20210225
  38. PFIZER-BIONTECH COVID-19 VACCINE [Concomitant]
     Active Substance: TOZINAMERAN
     Route: 065
     Dates: start: 20210317, end: 20210317
  39. INFLUENZA VIRUS VACCINE [Concomitant]
     Active Substance: INFLUENZA VIRUS VACCINE
     Indication: Product used for unknown indication
     Route: 065
  40. PNEUMOCOCCAL VACCINE POLYVALENT NOS [Concomitant]
     Active Substance: PNEUMOCOCCAL VACCINE POLYVALENT
     Indication: Product used for unknown indication
     Route: 065
  41. MORPHINE [Concomitant]
     Active Substance: MORPHINE
     Indication: Product used for unknown indication
     Route: 048

REACTIONS (6)
  - Small cell lung cancer metastatic [Fatal]
  - Lymphadenopathy [Unknown]
  - Chest discomfort [Unknown]
  - Fatigue [Unknown]
  - Vomiting [Unknown]
  - Nausea [Unknown]

NARRATIVE: CASE EVENT DATE: 20201119
